FAERS Safety Report 18659362 (Version 2)
Quarter: 2021Q1

REPORT INFORMATION
  Report Type: Report from Study
  Country: CA (occurrence: CA)
  Receive Date: 20201224
  Receipt Date: 20210213
  Transmission Date: 20210419
  Serious: Yes (Other)
  Sender: FDA-Public Use
  Company Number: NVSC2020CA339774

PATIENT
  Sex: Female

DRUGS (6)
  1. REBIF [Concomitant]
     Active Substance: INTERFERON BETA-1A
     Indication: FATIGUE
     Dosage: 44 MCGM, 3X/WEEK, 47 MONTHS
     Route: 065
  2. GILENYA [Suspect]
     Active Substance: FINGOLIMOD HYDROCHLORIDE
     Dosage: 0.5 MG, QD, 12 MONTHS, DISEASE ACTIVITY
     Route: 065
  3. TECFIDERA [Concomitant]
     Active Substance: DIMETHYL FUMARATE
     Indication: PRODUCT USED FOR UNKNOWN INDICATION
     Dosage: 240 MG, BID, 20 MONTHS, DISEASE ACTIVITY
     Route: 065
  4. GILENYA [Suspect]
     Active Substance: FINGOLIMOD HYDROCHLORIDE
     Indication: SECONDARY PROGRESSIVE MULTIPLE SCLEROSIS
     Dosage: UNK
     Route: 048
     Dates: start: 20130125, end: 20160823
  5. TYSABRI [Concomitant]
     Active Substance: NATALIZUMAB
     Indication: PRODUCT USED FOR UNKNOWN INDICATION
     Dosage: UNK, EVERY 4?6 WEEKS, 40 MONTHS
     Route: 065
  6. BETASERON [Concomitant]
     Active Substance: INTERFERON BETA-1B
     Indication: DRUG INTOLERANCE
     Dosage: 250 MG, Q 2 DAYS, 36 MONTHS
     Route: 065

REACTIONS (2)
  - Expanded disability status scale score increased [Unknown]
  - Product use in unapproved indication [Unknown]
